FAERS Safety Report 6914087-5 (Version None)
Quarter: 2010Q3

REPORT INFORMATION
  Report Type: 
  Country: None (occurrence: None)
  Receive Date: 20100806
  Receipt Date: 20100806
  Transmission Date: 20110219
  Serious: No
  Sender: FDA-Public Use
  Company Number: None

PATIENT
  Age: 39 Year
  Sex: Female
  Weight: 68.0396 kg

DRUGS (1)
  1. MAGNEVIST [Suspect]
     Dosage: 14ML ONCE IV
     Route: 042
     Dates: start: 20100805

REACTIONS (2)
  - PRURITUS [None]
  - URTICARIA [None]
